FAERS Safety Report 6314238-X (Version None)
Quarter: 2009Q3

REPORT INFORMATION
  Report Type: 
  Country: None (occurrence: None)
  Receive Date: 20090817
  Receipt Date: 20090805
  Transmission Date: 20100115
  Serious: Yes (Other)
  Sender: FDA-Public Use
  Company Number: 2009009282

PATIENT
  Age: 57 Year
  Sex: Female
  Weight: 117.9352 kg

DRUGS (2)
  1. NUVIGIL [Suspect]
     Indication: SLEEP APNOEA SYNDROME
     Dosage: 150 MG (150 MG, 1 IN 1 D), ORAL; 75 MG (75 MG, 1 IN 1 D), ORAL
     Route: 048
     Dates: start: 20090624, end: 20090802
  2. NUVIGIL [Suspect]
     Indication: SLEEP APNOEA SYNDROME
     Dosage: 150 MG (150 MG, 1 IN 1 D), ORAL; 75 MG (75 MG, 1 IN 1 D), ORAL
     Route: 048
     Dates: start: 20090805

REACTIONS (9)
  - CARDIAC FAILURE CONGESTIVE [None]
  - CARDIOMYOPATHY [None]
  - DECREASED APPETITE [None]
  - FEELING ABNORMAL [None]
  - INTENTIONAL DRUG MISUSE [None]
  - MEDICATION ERROR [None]
  - NAUSEA [None]
  - SOMNOLENCE [None]
  - TACHYCARDIA [None]
